FAERS Safety Report 8573898-3 (Version None)
Quarter: 2012Q3

REPORT INFORMATION
  Report Type: 
  Country: None (occurrence: None)
  Receive Date: 20120806
  Receipt Date: 20120503
  Transmission Date: 20120928
  Serious: No
  Sender: FDA-Public Use
  Company Number: US-GLAXOSMITHKLINE-A0976281A

PATIENT
  Age: 5 Year
  Sex: Male

DRUGS (3)
  1. EPIPEN [Concomitant]
  2. FLUTICASONE PROPIONATE [Suspect]
     Indication: ASTHMA
     Dosage: 1PUFF TWICE PER DAY
     Route: 055
     Dates: start: 20111031, end: 20120501
  3. ALBUTEROL [Concomitant]

REACTIONS (9)
  - PRODUCT QUALITY ISSUE [None]
  - HYPERSENSITIVITY [None]
  - PRURITUS GENERALISED [None]
  - OROPHARYNGEAL PAIN [None]
  - THROAT IRRITATION [None]
  - ABDOMINAL PAIN UPPER [None]
  - PRURITUS [None]
  - DRUG HYPERSENSITIVITY [None]
  - UNDERDOSE [None]
